FAERS Safety Report 7514057-2 (Version None)
Quarter: 2011Q2

REPORT INFORMATION
  Report Type: 
  Country: None (occurrence: None)
  Receive Date: 20110531
  Receipt Date: 20100323
  Transmission Date: 20111010
  Serious: No
  Sender: FDA-Public Use
  Company Number: US-BAYER-201017355NA

PATIENT

DRUGS (2)
  1. AVELOX [Suspect]
  2. LEVAQUIN [Concomitant]

REACTIONS (1)
  - URTICARIA [None]
